FAERS Safety Report 6855375-0 (Version None)
Quarter: 2010Q3

REPORT INFORMATION
  Report Type: 
  Country: None (occurrence: None)
  Receive Date: 20100719
  Receipt Date: 20100709
  Transmission Date: 20110219
  Serious: No
  Sender: FDA-Public Use
  Company Number: US-BIOGENIDEC-2010BI023742

PATIENT
  Age: 42 Year
  Sex: Male

DRUGS (1)
  1. TYSABRI [Suspect]
     Indication: MULTIPLE SCLEROSIS
     Route: 042
     Dates: start: 20080219

REACTIONS (7)
  - ARRHYTHMIA [None]
  - BULLOUS LUNG DISEASE [None]
  - COELIAC DISEASE [None]
  - FOOD ALLERGY [None]
  - INFLUENZA LIKE ILLNESS [None]
  - LUNG DISORDER [None]
  - RENAL CYST [None]
